FAERS Safety Report 11608348 (Version 1)
Quarter: 2015Q4

REPORT INFORMATION
  Report Type: Spontaneous
  Country: US (occurrence: US)
  Receive Date: 20151007
  Receipt Date: 20151007
  Transmission Date: 20160304
  Serious: Yes (Hospitalization)
  Sender: FDA-Public Use
  Company Number: US-GILEAD-2015-0175407

PATIENT
  Sex: Female

DRUGS (2)
  1. RANEXA [Suspect]
     Active Substance: RANOLAZINE
     Dosage: 1000 MG, BID
     Route: 065
  2. RANEXA [Suspect]
     Active Substance: RANOLAZINE
     Indication: PRODUCT USED FOR UNKNOWN INDICATION
     Dosage: 500 MG, BID
     Route: 065

REACTIONS (13)
  - Nausea [Unknown]
  - Constipation [Unknown]
  - Tinnitus [Unknown]
  - Dysstasia [Unknown]
  - Headache [Unknown]
  - Paraesthesia [Unknown]
  - Throat tightness [Unknown]
  - Pallor [Unknown]
  - Muscle spasms [Unknown]
  - Dizziness [Unknown]
  - Influenza like illness [Unknown]
  - Ocular discomfort [Unknown]
  - Blood pressure increased [Unknown]
